FAERS Safety Report 5080587-9 (Version None)
Quarter: 2006Q3

REPORT INFORMATION
  Report Type: 
  Country: None (occurrence: None)
  Receive Date: 20060815
  Receipt Date: 20060811
  Transmission Date: 20061208
  Serious: Yes (Congenital Anomaly)
  Sender: FDA-Public Use
  Company Number: US-GLAXOSMITHKLINE-A0616362A

PATIENT
  Sex: Female
  Weight: 3.1 kg

DRUGS (2)
  1. COMBIVIR [Suspect]
     Indication: HIV INFECTION
     Dosage: 1TAB TWICE PER DAY
     Dates: start: 20051213
  2. VIRACEPT [Concomitant]
     Indication: HIV INFECTION
     Dates: start: 20051213

REACTIONS (11)
  - ADRENOGENITAL SYNDROME [None]
  - ANEURYSM [None]
  - ATRIAL SEPTAL DEFECT [None]
  - CARDIAC MURMUR [None]
  - CARDIOMEGALY [None]
  - DRUG EXPOSURE DURING PREGNANCY [None]
  - EBSTEIN'S ANOMALY [None]
  - PATENT DUCTUS ARTERIOSUS [None]
  - PULMONARY ARTERIAL PRESSURE ABNORMAL [None]
  - RIGHT VENTRICULAR SYSTOLIC PRESSURE INCREASED [None]
  - TRICUSPID VALVE INCOMPETENCE [None]
